FAERS Safety Report 8509640-1 (Version None)
Quarter: 2012Q3

REPORT INFORMATION
  Report Type: 
  Country: None (occurrence: None)
  Receive Date: 20120713
  Receipt Date: 20120629
  Transmission Date: 20120928
  Serious: Yes (Other)
  Sender: FDA-Public Use
  Company Number: CHPA2012US014762

PATIENT
  Age: 38 Year
  Sex: Female

DRUGS (4)
  1. NICOTINE [Suspect]
     Indication: SMOKING CESSATION THERAPY
     Dosage: 14 MG, QD
     Route: 062
     Dates: start: 20111120, end: 20111123
  2. ANTIASTHMATICS [Concomitant]
     Indication: ASTHMA
     Dosage: UNK, UNK
     Dates: start: 20111101
  3. OTHER ANTI-ASTHMATICS, INHALANTS [Concomitant]
     Indication: ASTHMA
     Dosage: UNK, UNK
     Dates: start: 20111101
  4. HABITROL [Suspect]
     Indication: SMOKING CESSATION THERAPY
     Dosage: 14 MG, QD
     Route: 062
     Dates: start: 20111113, end: 20111119

REACTIONS (1)
  - PRURITUS [None]
